FAERS Safety Report 9246989 (Version 2)
Quarter: 2013Q2

REPORT INFORMATION
  Report Type: Report from Study
  Country: AU (occurrence: AU)
  Receive Date: 20130422
  Receipt Date: 20130426
  Transmission Date: 20140414
  Serious: Yes (Hospitalization, Other)
  Sender: FDA-Public Use
  Company Number: PHHY2013AU009435

PATIENT
  Age: 72 Year
  Sex: Female

DRUGS (1)
  1. ACLASTA [Suspect]
     Dosage: 5 MG, UNK
     Route: 042
     Dates: start: 20110503

REACTIONS (9)
  - Rotator cuff syndrome [Recovered/Resolved with Sequelae]
  - Musculoskeletal pain [Recovered/Resolved with Sequelae]
  - Ligament injury [Recovered/Resolved with Sequelae]
  - Myocardial infarction [Recovered/Resolved with Sequelae]
  - Deep vein thrombosis [Recovered/Resolved with Sequelae]
  - Post procedural haemorrhage [Recovered/Resolved with Sequelae]
  - Arterial injury [Recovered/Resolved with Sequelae]
  - Melaena [Recovered/Resolved with Sequelae]
  - Herpes zoster [Recovered/Resolved with Sequelae]
